FAERS Safety Report 12991736 (Version 1)
Quarter: 2016Q4

REPORT INFORMATION
  Report Type: Spontaneous
  Country: US (occurrence: US)
  Receive Date: 20161201
  Receipt Date: 20161201
  Transmission Date: 20170207
  Serious: Yes (Death)
  Sender: FDA-Public Use
  Company Number: US-SPECTRUM PHARMACEUTICALS, INC.-16-F-US-00371

PATIENT
  Age: 56 Year
  Sex: Male

DRUGS (1)
  1. FUSILEV [Suspect]
     Active Substance: LEVOLEUCOVORIN CALCIUM
     Indication: PRODUCT USED FOR UNKNOWN INDICATION
     Dosage: 400 MG, UNK
     Dates: start: 20160217, end: 20160621

REACTIONS (1)
  - Death [Fatal]

NARRATIVE: CASE EVENT DATE: 20161112
